FAERS Safety Report 6610095-2 (Version None)
Quarter: 2010Q1

REPORT INFORMATION
  Report Type: 
  Country: None (occurrence: None)
  Receive Date: 20100219
  Receipt Date: 20100201
  Transmission Date: 20100710
  Serious: Yes (Hospitalization)
  Sender: FDA-Public Use
  Company Number: RO-001419

PATIENT
  Sex: Male
  Weight: 62 kg

DRUGS (10)
  1. DEGARELIX (DEGARELIX) [Suspect]
     Indication: PROSTATE CANCER
     Dosage: 240 MG SUBCUTANEOUS
     Route: 058
     Dates: start: 20100118, end: 20100118
  2. DIAPREL [Concomitant]
  3. PYRAZINAMIDE [Concomitant]
  4. ETAMBUTOL [Concomitant]
  5. SINERDOL [Concomitant]
  6. TAMSULOSIN HCL [Concomitant]
  7. DEXKETOPROFEN [Concomitant]
  8. TRAMADOL HCL [Concomitant]
  9. FERROGRADUMET [Concomitant]
  10. PARACETAMOL [Concomitant]

REACTIONS (7)
  - ANAEMIA [None]
  - APHASIA [None]
  - BRAIN OEDEMA [None]
  - CONDITION AGGRAVATED [None]
  - MALIGNANT NEOPLASM PROGRESSION [None]
  - METASTASES TO CENTRAL NERVOUS SYSTEM [None]
  - PROSTATE CANCER METASTATIC [None]
